FAERS Safety Report 24961757 (Version 3)
Quarter: 2025Q1

REPORT INFORMATION
  Report Type: Spontaneous
  Country: US (occurrence: US)
  Receive Date: 20250212
  Receipt Date: 20250306
  Transmission Date: 20250409
  Serious: Yes (Hospitalization, Other)
  Sender: TEIKOKU
  Company Number: US-TPU-TPU-2025-00064

PATIENT
  Age: 83 Year
  Sex: Female

DRUGS (4)
  1. LIDOCAINE PATCH [Suspect]
     Active Substance: LIDOCAINE
     Indication: Back pain
  2. OXYCODONE [Concomitant]
     Active Substance: OXYCODONE
  3. ACETAMINOPHEN [Concomitant]
     Active Substance: ACETAMINOPHEN
     Indication: Sinus disorder
  4. ACETAMINOPHEN [Concomitant]
     Active Substance: ACETAMINOPHEN
     Indication: Arthralgia

REACTIONS (5)
  - Fall [Unknown]
  - Surgery [Unknown]
  - Vertigo [Unknown]
  - Constipation [Unknown]
  - Fluid retention [Unknown]

NARRATIVE: CASE EVENT DATE: 20230101
